FAERS Safety Report 24113608 (Version 1)
Quarter: 2024Q3

REPORT INFORMATION
  Report Type: Spontaneous
  Country: US (occurrence: US)
  Receive Date: 20240720
  Receipt Date: 20240720
  Transmission Date: 20241017
  Serious: Yes (Other)
  Sender: AMGEN
  Company Number: US-AMGEN-USASP2024141437

PATIENT

DRUGS (3)
  1. PREDNISONE [Suspect]
     Active Substance: PREDNISONE
     Indication: Immunosuppression
     Dosage: UNK
     Route: 048
  2. PREDNISONE [Suspect]
     Active Substance: PREDNISONE
     Indication: Uveitis
  3. INFLIXIMAB [Suspect]
     Active Substance: INFLIXIMAB
     Indication: Immunosuppression
     Dosage: UNK
     Route: 065

REACTIONS (13)
  - Ocular hypertension [Unknown]
  - Iris adhesions [Unknown]
  - Hyphaema [Recovered/Resolved]
  - Vitreous haemorrhage [Recovered/Resolved]
  - Retinopathy proliferative [Unknown]
  - Retinal detachment [Unknown]
  - Device dislocation [Unknown]
  - Post procedural haemorrhage [Unknown]
  - Ocular procedural complication [Unknown]
  - Ciliary zonular weakness [Unknown]
  - Drug effective for unapproved indication [Unknown]
  - Off label use [Unknown]
  - Posterior capsule rupture [Unknown]
